FAERS Safety Report 12899789 (Version 1)
Quarter: 2016Q4

REPORT INFORMATION
  Report Type: Spontaneous
  Country: US (occurrence: US)
  Receive Date: 20161101
  Receipt Date: 20161101
  Transmission Date: 20170207
  Serious: No
  Sender: FDA-Public Use
  Company Number: US-PFIZER INC-2016483444

PATIENT
  Age: 76 Year
  Sex: Female

DRUGS (20)
  1. NITROFURANTOIN MONO/MAC [Concomitant]
     Active Substance: NITROFURANTOIN\NITROFURANTOIN MONOHYDRATE
     Dosage: 100 MG, UNK (TAKE ONE CAPSULE BY MOUTH EVERY 12 HOURS WITH FOOD)
     Route: 048
  2. SOTALOL HCL [Concomitant]
     Active Substance: SOTALOL
     Dosage: 160 MG, UNK (TWO TABLETS BY MOUTH EVERY TWELVE HOURS)
     Route: 048
  3. ENALAPRIL MALEATE. [Concomitant]
     Active Substance: ENALAPRIL MALEATE
     Dosage: 20 MG, 2X/DAY (TAKE ONE TABLET BY MOUTH TWICE DAILY)
     Route: 048
  4. CEPHALEXIN. [Concomitant]
     Active Substance: CEPHALEXIN
     Dosage: 250 MG, UNK (TAKE ONE CAPSULE BY MOUTH EVERY SIX HOURS)
     Route: 048
  5. HYDRALAZINE HCL [Concomitant]
     Active Substance: HYDRALAZINE HYDROCHLORIDE
     Dosage: 25 MG, 3X/DAY
     Route: 048
  6. WARFARIN SODIUM. [Concomitant]
     Active Substance: WARFARIN SODIUM
     Dosage: 5 MG, UNK (TAKE ONE TABLET BY MOUTH AS DIRECTED BY PHYSICIAN)
     Route: 048
  7. OMEPRAZOLE. [Concomitant]
     Active Substance: OMEPRAZOLE
     Dosage: 20 MG, 1X/DAY (ONE CAPSULE BY MOUTH ONE TIME DAILY)
     Route: 048
  8. FENOFIBRATE. [Concomitant]
     Active Substance: FENOFIBRATE
     Dosage: 48 MG, 1X/DAY (ONE TABLET BY MOUTH ONE TIME DAILY)
     Route: 048
  9. REVATIO [Suspect]
     Active Substance: SILDENAFIL CITRATE
     Dosage: 20 MG, 3X/DAY
     Route: 048
  10. HYOSCYAMINE SULFATE. [Concomitant]
     Active Substance: HYOSCYAMINE SULFATE
     Dosage: 0.375 MG, 2X/DAY (1 TABLET BY MOUTH TWICE DAILY)
     Route: 048
  11. PYRIDOSTIGMINE BROMIDE. [Concomitant]
     Active Substance: PYRIDOSTIGMINE BROMIDE
     Dosage: 30 MG, 2X/DAY (1/2 TAB BY MOUTH TWICE DAILY)
     Route: 048
  12. ELIQUIS [Concomitant]
     Active Substance: APIXABAN
     Dosage: 5 MG, 2X/DAY
     Route: 048
  13. ONDANSETRON HCL [Concomitant]
     Active Substance: ONDANSETRON HYDROCHLORIDE
     Indication: NAUSEA
     Dosage: 4 MG, AS NEEDED (TAKE ONE TABLET BY MOUTH EVERY 6 HOURS AS NEEDED FOR NAUSEA AND VOMITING)
     Route: 048
  14. HYDRALAZINE HCL [Concomitant]
     Active Substance: HYDRALAZINE HYDROCHLORIDE
     Dosage: 12.5 MG, 3X/DAY (TAKE 1/2 TAB BY MOUTH THREE TIMES A DAY)
  15. ASPIRIN (E.C.) [Concomitant]
     Active Substance: ASPIRIN
     Dosage: 81 MG, 1X/DAY
     Route: 048
  16. LASIX [Concomitant]
     Active Substance: FUROSEMIDE
     Dosage: UNK
  17. ONDANSETRON HCL [Concomitant]
     Active Substance: ONDANSETRON HYDROCHLORIDE
     Indication: VOMITING
  18. HYDROCODONE/ACETAMINOPHEN [Concomitant]
     Active Substance: ACETAMINOPHEN\HYDROCODONE
     Indication: PAIN
     Dosage: 1 DF, AS NEEDED ([HYDROCODONE:5 MG;ACETAMINOPHEN:325 MG] TAKE ONE TABLET BY MOUTH EVERY SIX HOURS)
     Route: 048
  19. FUROSEMIDE. [Concomitant]
     Active Substance: FUROSEMIDE
     Indication: SWELLING
     Dosage: 40 MG, AS NEEDED (1 TABLET BY MOUTH DAILY AS NEEDED FOR SWELLING)
     Route: 048
  20. POTASSIUM CHLORIDE. [Concomitant]
     Active Substance: POTASSIUM CHLORIDE
     Dosage: 10 MEQ, DAILY (TAKE ONE TABLET BY MOUTH WHEN TAKING LASIX)
     Route: 048

REACTIONS (2)
  - Cardiac disorder [Unknown]
  - Heart rate decreased [Unknown]
